FAERS Safety Report 5736416-0 (Version None)
Quarter: 2008Q2

REPORT INFORMATION
  Report Type: 
  Country: None (occurrence: None)
  Receive Date: 20080513
  Receipt Date: 20080502
  Transmission Date: 20081010
  Serious: Yes (Congenital Anomaly)
  Sender: FDA-Public Use
  Company Number: A0727762A

PATIENT
  Sex: Male

DRUGS (1)
  1. PAROXETINE HCL [Suspect]
     Indication: DRUG USE FOR UNKNOWN INDICATION

REACTIONS (3)
  - DRUG EXPOSURE DURING PREGNANCY [None]
  - FALLOT'S TETRALOGY [None]
  - MULTIPLE CONGENITAL ABNORMALITIES [None]
